FAERS Safety Report 23086267 (Version 2)
Quarter: 2023Q4

REPORT INFORMATION
  Report Type: Spontaneous
  Country: GB (occurrence: GB)
  Receive Date: 20231019
  Receipt Date: 20231102
  Transmission Date: 20240110
  Serious: Yes (Hospitalization, Other)
  Sender: FDA-Public Use
  Company Number: GB-BIAL-BIAL-15540

PATIENT

DRUGS (9)
  1. OPICAPONE [Suspect]
     Active Substance: OPICAPONE
     Indication: Parkinson^s disease
     Dosage: 50 MILLIGRAM, DAILY
     Route: 048
     Dates: start: 202112, end: 202308
  2. SINEMET [Concomitant]
     Active Substance: CARBIDOPA\LEVODOPA
     Indication: Parkinson^s disease
     Dosage: 12.5/50 MG, 16 TABLETS (3 TABLETS, FIVE TIMES A DAY, PLUS CR AT NIGHT, IF REQUIRED)
     Route: 065
  3. SINEMET [Concomitant]
     Active Substance: CARBIDOPA\LEVODOPA
     Indication: Parkinson^s disease
     Dosage: 12.5/50 MG, 16 TABLETS (3 TABLETS, FIVE TIMES A DAY, PLUS CR AT NIGHT, IF REQUIRED)
     Route: 065
  4. ROPINIROLE [Concomitant]
     Active Substance: ROPINIROLE
     Indication: Parkinson^s disease
     Dosage: 4 MILLIGRAM, UNKNOWN
     Route: 065
     Dates: end: 202302
  5. ROPINIROLE [Concomitant]
     Active Substance: ROPINIROLE
     Dosage: UNK, UNKNOWN
     Route: 065
     Dates: start: 202302
  6. SINEMET CR [Concomitant]
     Active Substance: CARBIDOPA\LEVODOPA
     Indication: Parkinson^s disease
     Dosage: 1 DOSAGE FORM, AT NIGHT
     Route: 065
  7. SINEMET CR [Concomitant]
     Active Substance: CARBIDOPA\LEVODOPA
     Indication: Product used for unknown indication
     Dosage: 1 DOSAGE FORM, AT NIGHT
     Route: 065
  8. PAROXETINE [Concomitant]
     Active Substance: PAROXETINE
     Indication: Depression
     Dosage: 30 MILLIGRAM, UNKNOWN
     Route: 065
  9. PAROXETINE [Concomitant]
     Active Substance: PAROXETINE
     Dosage: UNK, UNKNOWN
     Route: 065

REACTIONS (8)
  - Spinal fracture [Recovered/Resolved]
  - Fall [Recovered/Resolved]
  - Syncope [Recovered/Resolved]
  - Blood pressure decreased [Recovered/Resolved]
  - Fall [Recovered/Resolved]
  - Dizziness [Recovered/Resolved]
  - Impulse-control disorder [Recovered/Resolved]
  - Orthostatic hypotension [Recovered/Resolved]

NARRATIVE: CASE EVENT DATE: 20211201
